FAERS Safety Report 4483204-1 (Version None)
Quarter: 2004Q3

REPORT INFORMATION
  Report Type: 
  Country: None (occurrence: None)
  Receive Date: 20040921
  Receipt Date: 20040615
  Transmission Date: 20050211
  Serious: Yes (Death)
  Sender: FDA-Public Use
  Company Number: 163-20785-04060320(0)

PATIENT
  Age: 70 Year
  Sex: Male

DRUGS (2)
  1. THALOMID [Suspect]
     Indication: MULTIPLE MYELOMA
     Dosage: 100 MG, DAILY, ORAL
     Route: 048
     Dates: start: 20040212, end: 20040428
  2. MMF (MYCOPHENOLATE MOFETIL) [Concomitant]

REACTIONS (4)
  - DEATH [None]
  - DISEASE PROGRESSION [None]
  - FATIGUE [None]
  - PLATELET COUNT DECREASED [None]
